FAERS Safety Report 22239140 (Version 2)
Quarter: 2023Q2

REPORT INFORMATION
  Report Type: Spontaneous
  Country: JP (occurrence: JP)
  Receive Date: 20230421
  Receipt Date: 20230524
  Transmission Date: 20230722
  Serious: Yes (Other)
  Sender: FDA-Public Use
  Company Number: JP-ELI_LILLY_AND_COMPANY-JP202304005890

PATIENT
  Age: 87 Year
  Sex: Female
  Weight: 54.9 kg

DRUGS (3)
  1. TRULICITY [Suspect]
     Active Substance: DULAGLUTIDE
     Indication: Type 2 diabetes mellitus
     Dosage: 0.75 MG, WEEKLY (1/W)
     Route: 058
  2. GLICLAZIDE [Concomitant]
     Active Substance: GLICLAZIDE
     Dosage: 20 MG, EACH MORNING
     Route: 048
  3. LATANOPROST [Concomitant]
     Active Substance: LATANOPROST
     Dosage: UNK
     Route: 047

REACTIONS (5)
  - Portal venous gas [Recovered/Resolved]
  - Pneumatosis intestinalis [Recovering/Resolving]
  - Restlessness [Recovering/Resolving]
  - Gastrointestinal oedema [Recovering/Resolving]
  - Ascites [Recovering/Resolving]
